FAERS Safety Report 6192738-3 (Version None)
Quarter: 2009Q2

REPORT INFORMATION
  Report Type: 
  Country: None (occurrence: None)
  Receive Date: 20090518
  Receipt Date: 20090505
  Transmission Date: 20091009
  Serious: Yes (Other)
  Sender: FDA-Public Use
  Company Number: FR-AMGEN-STX345840

PATIENT
  Age: 65 Year
  Sex: Female

DRUGS (7)
  1. MIMPARA [Suspect]
     Indication: DRUG USE FOR UNKNOWN INDICATION
     Dates: start: 20080101
  2. UN-ALFA [Suspect]
  3. GARDENAL [Concomitant]
  4. UNSPECIFIED MEDICATION [Concomitant]
  5. UNSPECIFIED BETA BLOCKER [Concomitant]
  6. VASTEN [Concomitant]
  7. CALCIUM [Concomitant]

REACTIONS (4)
  - ACUTE PULMONARY OEDEMA [None]
  - PANCREATIC DISORDER [None]
  - PANCREATITIS CHRONIC [None]
  - WEIGHT DECREASED [None]
